FAERS Safety Report 12499182 (Version 3)
Quarter: 2016Q3

REPORT INFORMATION
  Report Type: Report from Study
  Country: BR (occurrence: BR)
  Receive Date: 20160627
  Receipt Date: 20160718
  Transmission Date: 20161109
  Serious: Yes (Hospitalization, Other)
  Sender: FDA-Public Use
  Company Number: PHHY2016BR062429

PATIENT
  Age: 77 Year
  Sex: Female
  Weight: 58 kg

DRUGS (4)
  1. EXELON PATCH [Suspect]
     Active Substance: RIVASTIGMINE
     Indication: DEMENTIA ALZHEIMER^S TYPE
     Dosage: 4.6 MG (PATCH 5 CM2), QD
     Route: 062
  2. LEVOTHYROXINE. [Concomitant]
     Active Substance: LEVOTHYROXINE
     Indication: THYROIDECTOMY
     Dosage: 88 MG, QD (1 TABLET DAILY)
     Route: 048
  3. ESCITALOPRAM OXALATE. [Concomitant]
     Active Substance: ESCITALOPRAM OXALATE
     Indication: DEPRESSION
     Dosage: 20 MG, QD (1 TABLET DAILY)
     Route: 048
  4. EXELON PATCH [Suspect]
     Active Substance: RIVASTIGMINE
     Dosage: 9.5 MG (PATCH 10 CM2), QD
     Route: 062

REACTIONS (12)
  - Limb discomfort [Unknown]
  - Abdominal discomfort [Unknown]
  - Application site irritation [Recovered/Resolved]
  - Application site erythema [Recovered/Resolved]
  - Blood pressure increased [Recovered/Resolved]
  - Application site pruritus [Recovered/Resolved]
  - Nausea [Recovered/Resolved]
  - Headache [Recovered/Resolved]
  - Malaise [Recovered/Resolved]
  - Product adhesion issue [Unknown]
  - Muscle spasms [Recovered/Resolved]
  - Asthenia [Recovered/Resolved]

NARRATIVE: CASE EVENT DATE: 20160415
